FAERS Safety Report 24444474 (Version 1)
Quarter: 2024Q4

REPORT INFORMATION
  Report Type: Spontaneous
  Country: US (occurrence: None)
  Receive Date: 20241015
  Receipt Date: 20241015
  Transmission Date: 20250115
  Serious: Yes (Hospitalization)
  Sender: Public
  Company Number: None

PATIENT
  Age: 73 Year
  Sex: Male

DRUGS (3)
  1. RISPERIDONE [Suspect]
     Active Substance: RISPERIDONE
     Indication: Affective disorder
  2. TROSPIUM CHLORIDE [Suspect]
     Active Substance: TROSPIUM CHLORIDE
  3. MIRABEGRON [Suspect]
     Active Substance: MIRABEGRON

REACTIONS (6)
  - Mental status changes [None]
  - Cognitive disorder [None]
  - Loss of personal independence in daily activities [None]
  - Poor quality sleep [None]
  - Urinary retention [None]
  - Wernicke^s encephalopathy [None]

NARRATIVE: CASE EVENT DATE: 20240714
